FAERS Safety Report 12527312 (Version 2)
Quarter: 2016Q3

REPORT INFORMATION
  Report Type: Spontaneous
  Country: JP (occurrence: JP)
  Receive Date: 20160705
  Receipt Date: 20160712
  Transmission Date: 20161109
  Serious: Yes (Other)
  Sender: FDA-Public Use
  Company Number: PHJP2016JP018570

PATIENT
  Age: 63 Year
  Sex: Female

DRUGS (1)
  1. ZOMETA [Suspect]
     Active Substance: ZOLEDRONIC ACID
     Indication: METASTASES TO BONE
     Dosage: UNK, QMO
     Route: 041
     Dates: start: 2014, end: 201410

REACTIONS (5)
  - Impaired healing [Unknown]
  - Loose tooth [Unknown]
  - Primary sequestrum [Unknown]
  - Osteonecrosis of jaw [Recovering/Resolving]
  - Sinusitis [Unknown]
